FAERS Safety Report 10330937 (Version 1)
Quarter: 2014Q3

REPORT INFORMATION
  Report Type: Spontaneous
  Country: AU (occurrence: AU)
  Receive Date: 20140722
  Receipt Date: 20140722
  Transmission Date: 20150326
  Serious: Yes (Other)
  Sender: FDA-Public Use
  Company Number: 2014SP004104

PATIENT
  Sex: Male

DRUGS (3)
  1. CARBOPLATIN. [Suspect]
     Active Substance: CARBOPLATIN
     Indication: LUNG NEOPLASM MALIGNANT
     Dates: start: 201205
  2. LUCANIX [Suspect]
     Active Substance: BELAGENPUMATUCEL-L
     Indication: LUNG NEOPLASM MALIGNANT
     Dates: start: 201205
  3. PEMETREXED [Suspect]
     Active Substance: PEMETREXED
     Indication: LUNG NEOPLASM MALIGNANT
     Dates: start: 201205

REACTIONS (7)
  - Rash [Unknown]
  - Lung neoplasm malignant [Unknown]
  - Immune system disorder [Unknown]
  - Pain in extremity [Unknown]
  - Off label use [Unknown]
  - Disease progression [Unknown]
  - Social avoidant behaviour [Unknown]
